FAERS Safety Report 23313277 (Version 3)
Quarter: 2024Q2

REPORT INFORMATION
  Report Type: Spontaneous
  Country: US (occurrence: US)
  Receive Date: 20231219
  Receipt Date: 20240515
  Transmission Date: 20240716
  Serious: Yes (Hospitalization)
  Sender: FDA-Public Use
  Company Number: US-SA-SAC20231212001305

PATIENT
  Sex: Female

DRUGS (1)
  1. DUPIXENT [Suspect]
     Active Substance: DUPILUMAB
     Indication: Neurodermatitis
     Dosage: 300 MG, QOW
     Route: 058
     Dates: start: 20221210

REACTIONS (6)
  - Spinal operation [Unknown]
  - Neurodermatitis [Unknown]
  - Product dose omission issue [Unknown]
  - Pruritus [Unknown]
  - Therapeutic response shortened [Unknown]
  - Face lift [Unknown]

NARRATIVE: CASE EVENT DATE: 20240101
